FAERS Safety Report 7967958-5 (Version None)
Quarter: 2011Q4

REPORT INFORMATION
  Report Type: 
  Country: None (occurrence: None)
  Receive Date: 20111207
  Receipt Date: 20111122
  Transmission Date: 20120403
  Serious: Yes (Hospitalization)
  Sender: FDA-Public Use
  Company Number: 2011AP002421

PATIENT
  Sex: Male

DRUGS (2)
  1. SIMVASTATIN [Suspect]
  2. SERTRALINE HYDROCHLORIDE [Suspect]

REACTIONS (2)
  - RHABDOMYOLYSIS [None]
  - FALL [None]
